FAERS Safety Report 8242191-0 (Version None)
Quarter: 2012Q1

REPORT INFORMATION
  Report Type: 
  Country: None (occurrence: None)
  Receive Date: 20120329
  Receipt Date: 20120315
  Transmission Date: 20120608
  Serious: Yes (Other)
  Sender: FDA-Public Use
  Company Number: BR-AMGEN-BRASP2012018070

PATIENT
  Age: 66 Year
  Sex: Female
  Weight: 71 kg

DRUGS (6)
  1. LOSARTAN POTASSIUM [Concomitant]
     Dosage: UNK UNK, UNK
  2. ANGIPRESS                          /00422901/ [Concomitant]
     Dosage: UNK UNK, UNK
  3. ENBREL [Suspect]
     Indication: PSORIATIC ARTHROPATHY
     Dosage: 50 MG, ONCE WEEKLY
     Route: 058
     Dates: start: 20111201
  4. ALPRAZOLAM [Concomitant]
     Dosage: UNK UNK, UNK
  5. CLINFAR [Concomitant]
     Dosage: UNK UNK, UNK
  6. GLUCOFORMIN [Concomitant]
     Dosage: UNK UNK, UNK

REACTIONS (3)
  - INJECTION SITE ERYTHEMA [None]
  - BLOOD PRESSURE INCREASED [None]
  - INJECTION SITE PRURITUS [None]
